FAERS Safety Report 23906477 (Version 2)
Quarter: 2024Q2

REPORT INFORMATION
  Report Type: Spontaneous
  Country: JP (occurrence: JP)
  Receive Date: 20240528
  Receipt Date: 20240604
  Transmission Date: 20240716
  Serious: Yes (Hospitalization, Disabling, Other)
  Sender: FDA-Public Use
  Company Number: JP-SERVIER-S24005573

PATIENT

DRUGS (28)
  1. ONCASPAR [Suspect]
     Active Substance: PEGASPARGASE
     Indication: Precursor T-lymphoblastic lymphoma/leukaemia
     Dosage: 1000 IU/M2
     Route: 041
     Dates: start: 20240313, end: 20240313
  2. ONCASPAR [Suspect]
     Active Substance: PEGASPARGASE
     Dosage: 1000 IU/M2
     Route: 041
     Dates: start: 20240407, end: 20240407
  3. ONCASPAR [Suspect]
     Active Substance: PEGASPARGASE
     Dosage: 1000 IU/M2
     Route: 041
     Dates: start: 20240430, end: 20240430
  4. METHOTREXATE [Concomitant]
     Active Substance: METHOTREXATE
     Indication: Precursor T-lymphoblastic lymphoma/leukaemia
     Dosage: 15 MG
     Route: 037
     Dates: start: 20240227, end: 20240227
  5. METHOTREXATE [Concomitant]
     Active Substance: METHOTREXATE
     Dosage: UNK
     Route: 037
     Dates: start: 20240403, end: 20240403
  6. METHOTREXATE [Concomitant]
     Active Substance: METHOTREXATE
     Dosage: 15 MG
     Route: 037
     Dates: start: 20240429, end: 20240429
  7. METHOTREXATE [Concomitant]
     Active Substance: METHOTREXATE
     Dosage: 2000 MG/M2, 24 HOURS
     Route: 041
     Dates: start: 20240429, end: 20240429
  8. PREDNISOLONE [Concomitant]
     Active Substance: PREDNISOLONE
     Indication: Precursor T-lymphoblastic lymphoma/leukaemia
     Dosage: 60 MG/M2,  IV/PO
     Route: 065
     Dates: start: 20240227, end: 20240304
  9. PREDNISOLONE [Concomitant]
     Active Substance: PREDNISOLONE
     Dosage: 60 MG/M2, TAPERING
     Route: 065
     Dates: start: 20240305, end: 20240325
  10. DEXAMETHASONE [Concomitant]
     Active Substance: DEXAMETHASONE
     Indication: Precursor T-lymphoblastic lymphoma/leukaemia
     Dosage: 3.3 MG
     Route: 037
     Dates: start: 20240227, end: 20240227
  11. DEXAMETHASONE [Concomitant]
     Active Substance: DEXAMETHASONE
     Dosage: UNK MG
     Route: 037
     Dates: start: 20240403, end: 20240403
  12. DEXAMETHASONE [Concomitant]
     Active Substance: DEXAMETHASONE
     Dosage: 3.3 MG
     Route: 037
     Dates: start: 20240429, end: 20240429
  13. CYCLOPHOSPHAMIDE [Concomitant]
     Active Substance: CYCLOPHOSPHAMIDE
     Indication: Precursor T-lymphoblastic lymphoma/leukaemia
     Dosage: 1000 MG/M2, 1 HR
     Route: 041
     Dates: start: 20240305, end: 20240305
  14. DAUNORUBICIN HYDROCHLORIDE [Concomitant]
     Active Substance: DAUNORUBICIN HYDROCHLORIDE
     Indication: Precursor T-lymphoblastic lymphoma/leukaemia
     Dosage: 50 MG/M2, 30 MIN
     Route: 041
     Dates: start: 20240305, end: 20240307
  15. VINCRISTINE SULFATE [Concomitant]
     Active Substance: VINCRISTINE SULFATE
     Indication: Precursor T-lymphoblastic lymphoma/leukaemia
     Dosage: 1.3 MG/M2
     Route: 042
     Dates: start: 20240305, end: 20240305
  16. VINCRISTINE SULFATE [Concomitant]
     Active Substance: VINCRISTINE SULFATE
     Dosage: 1.3 MG/M2
     Route: 042
     Dates: start: 20240312, end: 20240312
  17. VINCRISTINE SULFATE [Concomitant]
     Active Substance: VINCRISTINE SULFATE
     Dosage: 1.3 MG/M2
     Route: 042
     Dates: start: 20240319, end: 20240319
  18. VINCRISTINE SULFATE [Concomitant]
     Active Substance: VINCRISTINE SULFATE
     Dosage: 1.3 MG/M2
     Route: 042
     Dates: start: 20240326, end: 20240326
  19. VINCRISTINE SULFATE [Concomitant]
     Active Substance: VINCRISTINE SULFATE
     Dosage: 1.3 MG/M2
     Route: 042
     Dates: start: 20240429, end: 20240429
  20. FILGRASTIM [Concomitant]
     Active Substance: FILGRASTIM
     Indication: Product used for unknown indication
     Dosage: 150 UG SC/300 UG DIV UNTIL ANC IS ABOVE 5000/UL
     Route: 065
     Dates: start: 20240309, end: 2024
  21. CYTARABINE [Concomitant]
     Active Substance: CYTARABINE
     Indication: Precursor T-lymphoblastic lymphoma/leukaemia
     Dosage: 2 G/M2, QD
     Dates: start: 20240403, end: 20240406
  22. MITOXANTRONE HYDROCHLORIDE [Concomitant]
     Active Substance: MITOXANTRONE HYDROCHLORIDE
     Indication: Precursor T-lymphoblastic lymphoma/leukaemia
     Dosage: 10 MG/M2
     Route: 065
     Dates: start: 20240404, end: 20240405
  23. LEUCOVORIN [Concomitant]
     Active Substance: LEUCOVORIN\LEUCOVORIN CALCIUM
     Indication: Precursor T-lymphoblastic lymphoma/leukaemia
     Dosage: 15 MG/M2, 8X/DAY
     Route: 065
     Dates: start: 20240430, end: 20240430
  24. SULFAMETHOXAZOLE\TRIMETHOPRIM [Concomitant]
     Active Substance: SULFAMETHOXAZOLE\TRIMETHOPRIM
     Indication: Product used for unknown indication
     Route: 065
  25. URSO [Concomitant]
     Active Substance: URSODIOL
     Indication: Jaundice
     Dosage: UNK
     Route: 065
     Dates: start: 20240313
  26. LANSOPRAZOLE [Concomitant]
     Active Substance: LANSOPRAZOLE
     Indication: Product used for unknown indication
     Route: 065
  27. LEVOFLOXACIN HEMIHYDRATE [Concomitant]
     Active Substance: LEVOFLOXACIN
     Indication: Infection prophylaxis
     Dosage: UNK
     Route: 065
     Dates: start: 20240313
  28. FAMOTIDINE [Concomitant]
     Active Substance: FAMOTIDINE
     Indication: Product used for unknown indication
     Dosage: UNK
     Route: 065
     Dates: start: 20240427

REACTIONS (5)
  - Pancreatitis [Recovered/Resolved with Sequelae]
  - Hypoalbuminaemia [Recovering/Resolving]
  - Copper deficiency [Recovering/Resolving]
  - Underdose [Recovered/Resolved]
  - Inappropriate schedule of product administration [Recovered/Resolved]

NARRATIVE: CASE EVENT DATE: 20240301
